FAERS Safety Report 8227522-X (Version None)
Quarter: 2012Q1

REPORT INFORMATION
  Report Type: 
  Country: None (occurrence: None)
  Receive Date: 20120322
  Receipt Date: 20120314
  Transmission Date: 20120608
  Serious: Yes (Hospitalization)
  Sender: FDA-Public Use
  Company Number: US-ASTELLAS-2011US008617

PATIENT
  Sex: Female
  Weight: 110 kg

DRUGS (6)
  1. PROGRAF [Suspect]
     Indication: SMALL INTESTINE TRANSPLANT
     Dosage: 2 MG, BID
     Route: 048
     Dates: start: 20090923
  2. RITALIN [Concomitant]
     Indication: PRODUCT USED FOR UNKNOWN INDICATION
     Dosage: 5 MG, BID
     Route: 048
     Dates: start: 20110515
  3. KEPPRA [Concomitant]
     Indication: PRODUCT USED FOR UNKNOWN INDICATION
     Dosage: 750 MG, BID
     Route: 048
     Dates: start: 20110615
  4. MAGNESIUM SULFATE [Concomitant]
     Indication: PRODUCT USED FOR UNKNOWN INDICATION
     Dosage: UNK
     Route: 065
  5. PROGRAF [Suspect]
     Indication: PANCREAS TRANSPLANT
     Dosage: 4 MG IN AM, 3 MG IN PM
     Route: 048
  6. HYDROCORTISONE [Concomitant]
     Indication: PRODUCT USED FOR UNKNOWN INDICATION
     Dosage: 35 MG, UID/QD
     Route: 048

REACTIONS (3)
  - OFF LABEL USE [None]
  - MULTIPLE ORGAN TRANSPLANT REJECTION [None]
  - TREATMENT NONCOMPLIANCE [None]
